FAERS Safety Report 11492669 (Version 1)
Quarter: 2015Q3

REPORT INFORMATION
  Report Type: Spontaneous
  Country: JP (occurrence: JP)
  Receive Date: 20150910
  Receipt Date: 20150910
  Transmission Date: 20151125
  Serious: Yes (Other)
  Sender: FDA-Public Use
  Company Number: JP-BAXTER-2015BAX049318

PATIENT
  Age: 56 Year
  Sex: Female

DRUGS (3)
  1. EPIRUBICIN HYDROCHLORIDE. [Suspect]
     Active Substance: EPIRUBICIN HYDROCHLORIDE
     Indication: CERVIX CARCINOMA STAGE I
     Dosage: 5 CYCLES
     Route: 065
  2. CISPLATIN. [Suspect]
     Active Substance: CISPLATIN
     Indication: CERVIX CARCINOMA STAGE I
     Dosage: 5 CYCLES
     Route: 065
  3. IFOSFAMIDE FOR INJECTION [Suspect]
     Active Substance: IFOSFAMIDE
     Indication: CERVIX CARCINOMA STAGE I
     Dosage: 5 CYCLES
     Route: 065

REACTIONS (2)
  - Acute myeloid leukaemia [Recovering/Resolving]
  - Cervix carcinoma recurrent [Unknown]
